FAERS Safety Report 6584728-3 (Version None)
Quarter: 2010Q1

REPORT INFORMATION
  Report Type: 
  Country: None (occurrence: None)
  Receive Date: 20100217
  Receipt Date: 20100206
  Transmission Date: 20100710
  Serious: Yes (Other)
  Sender: FDA-Public Use
  Company Number: PHHY2010GB02170

PATIENT
  Sex: Male

DRUGS (1)
  1. CLOZARIL [Suspect]
     Indication: SCHIZOPHRENIA
     Dosage: 100 MG MANE AND 250 MG NOCTE
     Dates: start: 20100101, end: 20100108

REACTIONS (4)
  - CONVULSION [None]
  - FALL [None]
  - ORTHOSTATIC HYPOTENSION [None]
  - TONGUE BITING [None]
